FAERS Safety Report 6061462-X (Version None)
Quarter: 2009Q1

REPORT INFORMATION
  Report Type: 
  Country: None (occurrence: None)
  Receive Date: 20090129
  Receipt Date: 20090129
  Transmission Date: 20090719
  Serious: Yes (Hospitalization)
  Sender: FDA-Public Use
  Company Number: None

PATIENT
  Age: 71 Year
  Sex: Female
  Weight: 95 kg

DRUGS (1)
  1. MEGESTROL ACETATE [Suspect]
     Indication: ENDOMETRIAL CANCER
     Dates: start: 20081015, end: 20090112

REACTIONS (3)
  - ASTHENIA [None]
  - HYPERKALAEMIA [None]
  - METABOLIC ACIDOSIS [None]
